FAERS Safety Report 12461539 (Version 1)
Quarter: 2016Q2

REPORT INFORMATION
  Report Type: Other
  Country: GB (occurrence: GB)
  Receive Date: 20160613
  Receipt Date: 20160613
  Transmission Date: 20160815
  Serious: Yes (Other)
  Sender: FDA-Public Use
  Company Number: GB-MYLANLABS-2016M1023672

PATIENT

DRUGS (10)
  1. EVOREL [Concomitant]
     Indication: HORMONE REPLACEMENT THERAPY
     Dosage: 50 ?G, UNK
     Route: 062
  2. LESCOL [Concomitant]
     Active Substance: FLUVASTATIN SODIUM
     Indication: MYOCARDIAL ISCHAEMIA
     Dosage: 40 MILLIGRAM DAILY; TAKEN AT NIGHT
     Route: 065
     Dates: start: 20110401
  3. DILTIAZEM HYDROCHLORIDE. [Concomitant]
     Active Substance: DILTIAZEM HYDROCHLORIDE
     Indication: MYOCARDIAL ISCHAEMIA
     Dosage: 180 MILLIGRAM DAILY;
     Route: 065
     Dates: start: 20130924
  4. ASPIRIN                            /00002701/ [Concomitant]
     Active Substance: ASPIRIN
     Indication: MYOCARDIAL ISCHAEMIA
     Dosage: 75 MILLIGRAM DAILY;
     Route: 065
     Dates: start: 20130201
  5. RAMIPRIL. [Concomitant]
     Active Substance: RAMIPRIL
     Indication: HYPERTENSION
     Dosage: 10 MILLIGRAM DAILY;
     Route: 065
  6. BENDROFLUMETHIAZIDE [Concomitant]
     Active Substance: BENDROFLUMETHIAZIDE
     Indication: HYPERTENSION
     Dosage: 2.5 MILLIGRAM DAILY;
     Route: 065
  7. DICLOFENAC [Concomitant]
     Active Substance: DICLOFENAC
     Indication: PAIN
     Dosage: 150 MILLIGRAM DAILY;
     Route: 065
  8. FEXOFENADINE [Concomitant]
     Active Substance: FEXOFENADINE\FEXOFENADINE HYDROCHLORIDE
     Indication: URTICARIA
     Dosage: 180 MILLIGRAM DAILY;
     Route: 065
     Dates: start: 20160127
  9. LANSOPRAZOLE. [Concomitant]
     Active Substance: LANSOPRAZOLE
     Dosage: 15 MILLIGRAM DAILY;
     Route: 065
     Dates: start: 20131218
  10. DOXAZOSIN [Suspect]
     Active Substance: DOXAZOSIN\DOXAZOSIN MESYLATE
     Indication: HYPERTENSION
     Dosage: 1 MG, QD (1 MILLIGRAM DAILY)
     Route: 065
     Dates: start: 20160408

REACTIONS (3)
  - Haematuria [Unknown]
  - Back pain [Recovering/Resolving]
  - Chromaturia [Unknown]

NARRATIVE: CASE EVENT DATE: 201604
